FAERS Safety Report 7042074-8 (Version None)
Quarter: 2010Q4

REPORT INFORMATION
  Report Type: 
  Country: None (occurrence: None)
  Receive Date: 20101013
  Receipt Date: 20090909
  Transmission Date: 20110411
  Serious: No
  Sender: FDA-Public Use
  Company Number: US-ASTRAZENECA-2009SE06295

PATIENT
  Sex: Male

DRUGS (8)
  1. SYMBICORT [Suspect]
     Indication: PULMONARY FIBROSIS
     Dosage: 80 UG / 4.5 UG TWO PUFFS TWICE DAILY
     Route: 055
     Dates: start: 20090723
  2. LASIX [Concomitant]
     Indication: HYPERTENSION
  3. METOPROLOL [Concomitant]
  4. VERAPAMIL [Concomitant]
  5. POTASSIUM CHLORIDE [Concomitant]
  6. MICARDIS [Concomitant]
  7. FOSAMAX [Concomitant]
  8. VITAMINS [Concomitant]

REACTIONS (3)
  - DEVICE FAILURE [None]
  - DYSPNOEA [None]
  - FATIGUE [None]
